FAERS Safety Report 4733088-9 (Version None)
Quarter: 2005Q3

REPORT INFORMATION
  Report Type: 
  Country: None (occurrence: None)
  Receive Date: 20050801
  Receipt Date: 20050801
  Transmission Date: 20060218
  Serious: Yes (Hospitalization)
  Sender: FDA-Public Use
  Company Number: None

PATIENT
  Age: 80 Year
  Sex: Male
  Weight: 54.5 kg

DRUGS (5)
  1. BACLOFEN [Suspect]
     Indication: BACK PAIN
     Dosage: 5 MG PO TID
     Route: 048
     Dates: start: 20040301
  2. PROMETHAZINE [Suspect]
     Indication: NAUSEA
     Dosage: 60 MG PO Q 12 H
     Route: 048
     Dates: start: 20041101
  3. DIPHENHYDRAMINE HCL [Suspect]
     Indication: SLEEP DISORDER
     Dosage: PRN
  4. MORPHINE [Suspect]
     Indication: PAIN
  5. HYDROCODONE BITARTRATE + ACETAMINOPHEN [Concomitant]

REACTIONS (4)
  - DYSKINESIA [None]
  - FALL [None]
  - MENTAL STATUS CHANGES [None]
  - PAIN [None]
